FAERS Safety Report 6295883-7 (Version None)
Quarter: 2009Q3

REPORT INFORMATION
  Report Type: 
  Country: None (occurrence: None)
  Receive Date: 20090804
  Receipt Date: 20090728
  Transmission Date: 20100115
  Serious: Yes (Hospitalization)
  Sender: FDA-Public Use
  Company Number: SE-ASTRAZENECA-2009SE06058

PATIENT
  Age: 20 Year
  Sex: Female

DRUGS (2)
  1. SEROQUEL [Suspect]
     Dosage: AMOUNT 100 TABLETS 2.5G
     Route: 048
  2. ZOPIKLON [Concomitant]

REACTIONS (1)
  - DRUG TOXICITY [None]
